FAERS Safety Report 5281574-8 (Version None)
Quarter: 2007Q1

REPORT INFORMATION
  Report Type: 
  Country: None (occurrence: None)
  Receive Date: 20070330
  Receipt Date: 20070328
  Transmission Date: 20070707
  Serious: Yes (Hospitalization)
  Sender: FDA-Public Use
  Company Number: SI-BRISTOL-MYERS SQUIBB COMPANY-13729983

PATIENT
  Age: 44 Year
  Sex: Male

DRUGS (3)
  1. CISPLATIN [Suspect]
     Indication: TESTICULAR SEMINOMA (PURE)
  2. ETOPOSIDE [Suspect]
     Indication: TESTICULAR SEMINOMA (PURE)
  3. BLEOMYCIN [Suspect]
     Indication: TESTICULAR SEMINOMA (PURE)

REACTIONS (8)
  - ANAEMIA [None]
  - CAROTID ARTERY THROMBOSIS [None]
  - CEREBRAL ARTERY THROMBOSIS [None]
  - CONVULSION [None]
  - INFLAMMATION [None]
  - ISCHAEMIC STROKE [None]
  - LEUKOPENIA [None]
  - PYREXIA [None]
